FAERS Safety Report 25290414 (Version 1)
Quarter: 2025Q2

REPORT INFORMATION
  Report Type: Spontaneous
  Country: US (occurrence: US)
  Receive Date: 20250510
  Receipt Date: 20250510
  Transmission Date: 20250717
  Serious: No
  Sender: ZYDUS PHARM
  Company Number: US-CADILA HEALTHCARE LIMITED-US-ZYDUS-122889

PATIENT

DRUGS (1)
  1. ETHINYL ESTRADIOL\NORELGESTROMIN [Suspect]
     Active Substance: ETHINYL ESTRADIOL\NORELGESTROMIN
     Indication: Contraception
     Route: 062
     Dates: start: 20250307, end: 202503

REACTIONS (6)
  - Application site rash [Unknown]
  - Application site macule [Unknown]
  - Application site erythema [Unknown]
  - Menstruation irregular [Unknown]
  - Inappropriate schedule of product administration [Unknown]
  - Product packaging quantity issue [Unknown]

NARRATIVE: CASE EVENT DATE: 20250301
